FAERS Safety Report 10566004 (Version 1)
Quarter: 2014Q4

REPORT INFORMATION
  Report Type: Spontaneous
  Country: US (occurrence: None)
  Receive Date: 20141104
  Receipt Date: 20141104
  Transmission Date: 20150529
  Serious: Yes (Other)
  Sender: FDA-Public Use
  Company Number: None

PATIENT
  Age: 60 Year
  Sex: Male
  Weight: 82.1 kg

DRUGS (1)
  1. BUPIVACAINE [Suspect]
     Active Substance: BUPIVACAINE

REACTIONS (2)
  - Device failure [None]
  - Anaesthetic complication [None]

NARRATIVE: CASE EVENT DATE: 20141008
